FAERS Safety Report 9448917 (Version 1)
Quarter: 2013Q3

REPORT INFORMATION
  Report Type: Spontaneous
  Country: US (occurrence: US)
  Receive Date: 20130808
  Receipt Date: 20130808
  Transmission Date: 20140515
  Serious: Yes (Other)
  Sender: FDA-Public Use
  Company Number: US-ACTAVIS-2013-13510

PATIENT
  Age: 59 Year
  Sex: Female

DRUGS (2)
  1. GENTAMICIN SULFATE (UNKNOWN) [Suspect]
     Indication: EVIDENCE BASED TREATMENT
     Dosage: 300 MG, SINGLE
     Route: 042
  2. VANCOMYCIN [Concomitant]
     Indication: EVIDENCE BASED TREATMENT
     Dosage: 750 MG, SINGLE
     Route: 042

REACTIONS (2)
  - Myoclonus [Recovered/Resolved]
  - Prescribed overdose [Recovered/Resolved]
